FAERS Safety Report 5559434-4 (Version None)
Quarter: 2007Q4

REPORT INFORMATION
  Report Type: 
  Country: None (occurrence: None)
  Receive Date: 20071214
  Receipt Date: 20071002
  Transmission Date: 20080405
  Serious: No
  Sender: FDA-Public Use
  Company Number: US-ABBOTT-07P-163-0419396-00

PATIENT
  Sex: Female
  Weight: 91.4 kg

DRUGS (3)
  1. HUMIRA [Suspect]
     Indication: CROHN'S DISEASE
     Route: 058
     Dates: start: 20061101, end: 20070201
  2. HUMIRA [Suspect]
     Route: 058
     Dates: start: 20070817, end: 20070928
  3. HUMIRA [Suspect]

REACTIONS (6)
  - ANAEMIA [None]
  - ARTHRALGIA [None]
  - INFLUENZA LIKE ILLNESS [None]
  - NAUSEA [None]
  - OVERDOSE [None]
  - WHITE BLOOD CELL COUNT DECREASED [None]
